FAERS Safety Report 10338897 (Version 1)
Quarter: 2014Q3

REPORT INFORMATION
  Report Type: Spontaneous
  Country: AT (occurrence: AT)
  Receive Date: 20140724
  Receipt Date: 20140724
  Transmission Date: 20150326
  Serious: Yes (Hospitalization)
  Sender: FDA-Public Use
  Company Number: AT-MERZ NORTH AMERICA, INC.-14MRZ-00271

PATIENT
  Age: 36 Year
  Sex: Female

DRUGS (2)
  1. XEOMIN [Suspect]
     Active Substance: INCOBOTULINUMTOXINA
     Indication: SKIN WRINKLING
  2. XEOMIN [Suspect]
     Active Substance: INCOBOTULINUMTOXINA
     Indication: SKIN COSMETIC PROCEDURE

REACTIONS (3)
  - Vestibular neuronitis [None]
  - Restlessness [Recovered/Resolved]
  - Off label use [None]

NARRATIVE: CASE EVENT DATE: 20140115
